FAERS Safety Report 4353402-6 (Version None)
Quarter: 2004Q2

REPORT INFORMATION
  Report Type: 
  Country: None (occurrence: None)
  Receive Date: 20040504
  Receipt Date: 20040422
  Transmission Date: 20050107
  Serious: Yes (Hospitalization)
  Sender: FDA-Public Use
  Company Number: 04-00183

PATIENT
  Age: 43 Year
  Sex: Female
  Weight: 48.0813 kg

DRUGS (6)
  1. LORAZEPAM [Suspect]
     Indication: ANXIETY
     Dosage: 0.5 MG, FOUR TIMES DAILY, ORAL
     Route: 048
     Dates: start: 20040329, end: 20040402
  2. LISINOPRIL [Concomitant]
  3. ESTRATEST H.S. [Concomitant]
  4. PREMARIN [Concomitant]
  5. TRAZODONE HCL [Concomitant]
  6. GEODON [Concomitant]

REACTIONS (4)
  - ANXIETY [None]
  - DRUG SCREEN POSITIVE [None]
  - NERVOUSNESS [None]
  - PHARMACEUTICAL PRODUCT COMPLAINT [None]
